FAERS Safety Report 13902140 (Version 5)
Quarter: 2018Q1

REPORT INFORMATION
  Report Type: Spontaneous
  Country: US (occurrence: US)
  Receive Date: 20170824
  Receipt Date: 20180309
  Transmission Date: 20180508
  Serious: Yes (Hospitalization, Other)
  Sender: FDA-Public Use
  Company Number: US-ASTRAZENECA-2017SE86182

PATIENT
  Age: 861 Month
  Sex: Female
  Weight: 55.8 kg

DRUGS (19)
  1. NORVASC [Concomitant]
     Active Substance: AMLODIPINE BESYLATE
     Indication: BLOOD PRESSURE ABNORMAL
     Route: 048
     Dates: start: 2002
  2. SALINE [Concomitant]
     Active Substance: SODIUM CHLORIDE
     Dosage: NASAL SPRAY AND A GEL
  3. BRILINTA [Suspect]
     Active Substance: TICAGRELOR
     Indication: STENT PLACEMENT
     Route: 048
     Dates: start: 20170316
  4. SYNTRHOID [Concomitant]
     Indication: THYROID DISORDER
     Route: 065
  5. BRILINTA [Suspect]
     Active Substance: TICAGRELOR
     Indication: STENT PLACEMENT
     Route: 048
     Dates: start: 20160317
  6. ASPIRIN. [Concomitant]
     Active Substance: ASPIRIN
     Route: 048
  7. LIPITOR [Concomitant]
     Active Substance: ATORVASTATIN CALCIUM
     Indication: BLOOD CHOLESTEROL INCREASED
     Route: 048
     Dates: start: 1997
  8. VITAMIN D3 [Concomitant]
     Active Substance: CHOLECALCIFEROL
     Route: 048
  9. CALCIUM [Concomitant]
     Active Substance: CALCIUM
  10. VITAMIN B COMPLEX [Concomitant]
     Active Substance: CYANOCOBALAMIN\DEXPANTHENOL\NIACINAMIDE\PYRIDOXINE HYDROCHLORIDE\RIBOFLAVIN 5^-PHOSPHATE SODIUM\THIAMINE HYDROCHLORIDE\VITAMIN B COMPLEX
     Route: 048
  11. TOPROL XL [Suspect]
     Active Substance: METOPROLOL SUCCINATE
     Indication: BLOOD PRESSURE ABNORMAL
     Route: 048
     Dates: start: 2002
  12. FISH OIL [Concomitant]
     Active Substance: FISH OIL
  13. NITROSTAT [Concomitant]
     Active Substance: NITROGLYCERIN
     Dosage: 0.3MG UNKNOWN
     Route: 060
  14. VITAMIN D3 [Concomitant]
     Active Substance: CHOLECALCIFEROL
     Route: 048
  15. UBIDECARENONE [Concomitant]
     Active Substance: UBIDECARENONE
     Route: 048
  16. SYNTRHOID [Concomitant]
     Indication: THYROID DISORDER
     Route: 048
     Dates: start: 1997
  17. OMEGA [Concomitant]
     Active Substance: CONVALLARIA MAJALIS\CRATAEGUS LAEVIGATA LEAF\PROXYPHYLLINE
     Route: 048
  18. AMLODIPINE [Concomitant]
     Active Substance: AMLODIPINE BESYLATE
     Indication: BLOOD PRESSURE ABNORMAL
     Dosage: 5.0MG UNKNOWN
     Dates: start: 20170414
  19. MULTIVITAMIN [Concomitant]
     Active Substance: VITAMINS
     Route: 048

REACTIONS (15)
  - Neck pain [Unknown]
  - Sinus bradycardia [Unknown]
  - Coronary artery occlusion [Unknown]
  - Cough [Recovering/Resolving]
  - Epistaxis [Recovered/Resolved]
  - Vaginal haemorrhage [Unknown]
  - Dyspnoea [Unknown]
  - Myocardial infarction [Unknown]
  - Vaginal discharge [Recovered/Resolved]
  - Musculoskeletal pain [Unknown]
  - Muscle spasms [Recovering/Resolving]
  - Coronary artery disease [Unknown]
  - Paraesthesia [Unknown]
  - Fatigue [Unknown]
  - Eyelid disorder [Recovered/Resolved]

NARRATIVE: CASE EVENT DATE: 201708
